FAERS Safety Report 4517232-4 (Version None)
Quarter: 2004Q4

REPORT INFORMATION
  Report Type: 
  Country: None (occurrence: None)
  Receive Date: 20041130
  Receipt Date: 20041116
  Transmission Date: 20050328
  Serious: Yes (Hospitalization, Other)
  Sender: FDA-Public Use
  Company Number: DE_041114710

PATIENT
  Age: 58 Year
  Sex: Female

DRUGS (8)
  1. ALIMTA [Suspect]
     Indication: PLEURAL MESOTHELIOMA
     Dosage: 500 MG/M2
     Dates: start: 20040705
  2. PREDNISON (PREDNISONE) [Concomitant]
  3. FOLIC ACID [Concomitant]
  4. VITAMIN B-12 [Concomitant]
  5. NOVALGIN (METAMIZOLE SODIUM MONOHYDRATE) [Concomitant]
  6. AMITRIPTYLINE HCL [Concomitant]
  7. RADIATION THERAPY [Concomitant]
  8. EPOGEN [Concomitant]

REACTIONS (7)
  - ALVEOLITIS [None]
  - ANAEMIA [None]
  - DYSPNOEA [None]
  - HERPES ZOSTER [None]
  - METASTASES TO MUSCLE [None]
  - NEOPLASM PROGRESSION [None]
  - RESPIRATORY FAILURE [None]
